FAERS Safety Report 11399668 (Version 3)
Quarter: 2015Q3

REPORT INFORMATION
  Report Type: Spontaneous
  Country: US (occurrence: US)
  Receive Date: 20150820
  Receipt Date: 20150922
  Transmission Date: 20151125
  Serious: Yes (Hospitalization)
  Sender: FDA-Public Use
  Company Number: US-CTI_01768_2015

PATIENT
  Age: 51 Year
  Sex: Female

DRUGS (1)
  1. BETHKIS [Suspect]
     Active Substance: TOBRAMYCIN
     Indication: CYSTIC FIBROSIS
     Dosage: 300 MG/ 4 ML, 1 VIAL, BID
     Route: 055
     Dates: start: 20150710

REACTIONS (1)
  - Infection [Unknown]

NARRATIVE: CASE EVENT DATE: 20150814
